FAERS Safety Report 24285169 (Version 1)
Quarter: 2024Q3

REPORT INFORMATION
  Report Type: Spontaneous
  Country: IT (occurrence: IT)
  Receive Date: 20240905
  Receipt Date: 20240905
  Transmission Date: 20241017
  Serious: Yes (Other)
  Sender: AUROBINDO
  Company Number: IT-MLMSERVICE-20240724-PI139364-00128-1

PATIENT
  Age: 64 Year
  Sex: Male
  Weight: 62 kg

DRUGS (13)
  1. CARBOPLATIN [Suspect]
     Active Substance: CARBOPLATIN
     Indication: Thymoma
     Dosage: UNK
     Route: 065
     Dates: start: 201411, end: 201501
  2. CARBOPLATIN [Suspect]
     Active Substance: CARBOPLATIN
     Dosage: UNK UNK, CYCLICAL (5 CYCLES OF SIXTH LINE TREATMENT)
     Route: 065
     Dates: start: 201708, end: 201711
  3. DOXORUBICIN [Suspect]
     Active Substance: DOXORUBICIN
     Indication: Metastatic neoplasm
     Dosage: 50 MILLIGRAM/SQ. METER, CYCLICAL (ON DAY 1 (HALTED PREMATURELY))
     Route: 065
     Dates: start: 201408, end: 201408
  4. GEMCITABINE [Suspect]
     Active Substance: GEMCITABINE
     Indication: Thymoma
     Dosage: 1000 MILLIGRAM/SQ. METER (5 CYCLES OF SIXTH LINE TREATMENT)
     Route: 065
     Dates: start: 201708, end: 201711
  5. PACLITAXEL [Suspect]
     Active Substance: PACLITAXEL
     Indication: Thymoma
     Dosage: 175 MILLIGRAM/SQ. METER, CYCLICAL
     Route: 065
     Dates: start: 201411, end: 201501
  6. CISPLATIN [Suspect]
     Active Substance: CISPLATIN
     Indication: Thymoma malignant
     Dosage: 50 MILLIGRAM/SQ. METER, CYCLICAL (ON DAY 1(HALTED PREMATURELY))
     Route: 065
     Dates: start: 201408, end: 201408
  7. CISPLATIN [Suspect]
     Active Substance: CISPLATIN
     Indication: Metastatic neoplasm
     Dosage: UNK
     Route: 065
     Dates: start: 201511
  8. CYCLOPHOSPHAMIDE [Suspect]
     Active Substance: CYCLOPHOSPHAMIDE
     Indication: Thymoma malignant
     Dosage: 500 MILLIGRAM/SQ. METER, CYCLICAL (ON DAY 1 (HALTED PREMATURELY))
     Route: 065
     Dates: start: 201408, end: 201408
  9. CYCLOPHOSPHAMIDE [Suspect]
     Active Substance: CYCLOPHOSPHAMIDE
     Indication: Metastatic neoplasm
  10. FLUOROURACIL [Concomitant]
     Active Substance: FLUOROURACIL
     Dosage: UNK UNK, CYCLICAL
     Route: 065
     Dates: start: 201511
  11. NIVOLUMAB [Concomitant]
     Active Substance: NIVOLUMAB
     Indication: Thymoma
     Dosage: UNK
     Route: 065
     Dates: start: 201711
  12. CETUXIMAB [Concomitant]
     Active Substance: CETUXIMAB
     Indication: Thymoma
     Dosage: 6 CYCLES
     Route: 065
     Dates: start: 201505, end: 201703
  13. PREDNISONE [Concomitant]
     Active Substance: PREDNISONE
     Indication: Thymoma
     Dosage: UNK
     Route: 065
     Dates: start: 201505, end: 201703

REACTIONS (3)
  - Anaphylactic reaction [Recovered/Resolved]
  - Drug ineffective [Unknown]
  - Therapy partial responder [Unknown]

NARRATIVE: CASE EVENT DATE: 20140801
